FAERS Safety Report 13971006 (Version 2)
Quarter: 2017Q4

REPORT INFORMATION
  Report Type: Spontaneous
  Country: GB (occurrence: GB)
  Receive Date: 20170914
  Receipt Date: 20171024
  Transmission Date: 20180321
  Serious: Yes (Death, Hospitalization)
  Sender: FDA-Public Use
  Company Number: GB-AMGEN-GBRSP2017138328

PATIENT
  Age: 75 Year
  Sex: Male

DRUGS (3)
  1. ERYTHROPOIETIN [Suspect]
     Active Substance: ERYTHROPOIETIN
     Indication: ANAEMIA
     Dosage: 90000 UNIT, UNK
     Route: 065
     Dates: start: 201705
  2. FILGRASTIM [Suspect]
     Active Substance: FILGRASTIM
     Indication: ANAEMIA
     Dosage: 300 UNIT, UNK
     Route: 065
     Dates: start: 201705
  3. REVLIMID [Suspect]
     Active Substance: LENALIDOMIDE
     Indication: MYELODYSPLASTIC SYNDROME
     Dosage: 10 MG, QD
     Route: 048
     Dates: start: 20170814, end: 20170826

REACTIONS (1)
  - General physical health deterioration [Fatal]
